FAERS Safety Report 7796910-8 (Version None)
Quarter: 2011Q4

REPORT INFORMATION
  Report Type: 
  Country: None (occurrence: None)
  Receive Date: 20111005
  Receipt Date: 20110927
  Transmission Date: 20120403
  Serious: Yes (Other)
  Sender: FDA-Public Use
  Company Number: GB-ASTELLAS-2011EU006684

PATIENT
  Sex: Female

DRUGS (1)
  1. PROTOPIC [Suspect]
     Dosage: UNK
     Route: 065

REACTIONS (3)
  - SUICIDAL IDEATION [None]
  - TREMOR [None]
  - APPLICATION SITE PAIN [None]
